FAERS Safety Report 11874644 (Version 1)
Quarter: 2015Q4

REPORT INFORMATION
  Report Type: Spontaneous
  Country: US (occurrence: None)
  Receive Date: 20151228
  Receipt Date: 20151228
  Transmission Date: 20160305
  Serious: Yes (Disabling, Other)
  Sender: FDA-Public Use
  Company Number: None

PATIENT
  Age: 46 Year
  Sex: Male
  Weight: 83.92 kg

DRUGS (13)
  1. VITAMIN K2 [Concomitant]
     Active Substance: MENAQUINONE 6
  2. PREDNISONE. [Concomitant]
     Active Substance: PREDNISONE
  3. FEXOFENADINE [Concomitant]
     Active Substance: FEXOFENADINE\FEXOFENADINE HYDROCHLORIDE
  4. HYDROCODONE [Concomitant]
     Active Substance: HYDROCODONE
  5. AZATHIOPRINE. [Concomitant]
     Active Substance: AZATHIOPRINE
  6. MAGNESIUM [Concomitant]
     Active Substance: MAGNESIUM
  7. OTEZLA [Suspect]
     Active Substance: APREMILAST
     Indication: PSORIATIC ARTHROPATHY
     Route: 048
     Dates: start: 20150601, end: 20151227
  8. OTEZLA [Suspect]
     Active Substance: APREMILAST
     Indication: CROHN^S DISEASE
     Route: 048
     Dates: start: 20150601, end: 20151227
  9. CALCIUM AND VITAMIN D [Concomitant]
     Active Substance: CALCIUM\VITAMIN D
  10. GINKGO [Concomitant]
     Active Substance: GINKGO
  11. SINGULAIR [Concomitant]
     Active Substance: MONTELUKAST SODIUM
  12. OTEZLA [Concomitant]
     Active Substance: APREMILAST
  13. DIAZEPAM. [Concomitant]
     Active Substance: DIAZEPAM

REACTIONS (9)
  - Rhinorrhoea [None]
  - Sinus disorder [None]
  - Tachycardia [None]
  - Sinus headache [None]
  - Depression [None]
  - Deafness [None]
  - Myalgia [None]
  - Nasopharyngitis [None]
  - Upper respiratory tract infection [None]
